FAERS Safety Report 17574948 (Version 1)
Quarter: 2020Q1

REPORT INFORMATION
  Report Type: Spontaneous
  Country: US (occurrence: US)
  Receive Date: 20200317
  Receipt Date: 20200317
  Transmission Date: 20200409
  Serious: Yes (Life-Threatening)
  Sender: FDA-Public Use
  Company Number: None

PATIENT
  Age: 28 Year
  Sex: Male
  Weight: 90.72 kg

DRUGS (1)
  1. LEVETIRACETAM XR 500MG [Suspect]
     Active Substance: LEVETIRACETAM
     Route: 048
     Dates: start: 201311, end: 201505

REACTIONS (3)
  - Seizure [None]
  - Product substitution issue [None]
  - Malabsorption [None]
